FAERS Safety Report 20854775 (Version 1)
Quarter: 2022Q2

REPORT INFORMATION
  Report Type: Spontaneous
  Country: US (occurrence: None)
  Receive Date: 20220519
  Receipt Date: 20220519
  Transmission Date: 20220721
  Serious: Yes (Disabling)
  Sender: FDA-Public Use
  Company Number: None

PATIENT
  Age: 65 Year
  Sex: Female

DRUGS (16)
  1. PAXLOVID [Suspect]
     Active Substance: NIRMATRELVIR\RITONAVIR
     Indication: COVID-19
     Dosage: OTHER STRENGTH : 150MG + 100MG;?FREQUENCY : TWICE A DAY;?
     Route: 048
     Dates: start: 20220315, end: 20220322
  2. PAXLOVID [Suspect]
     Active Substance: NIRMATRELVIR\RITONAVIR
     Dosage: OTHER STRENGTH : 150MG + 100MG;?
     Dates: start: 20220320, end: 20220327
  3. PROPRANOLOL [Concomitant]
  4. ROPINIROLE [Concomitant]
     Active Substance: ROPINIROLE
  5. METHADONE [Concomitant]
     Active Substance: METHADONE HYDROCHLORIDE
  6. FAMOTIDINE [Concomitant]
     Active Substance: FAMOTIDINE
  7. TRINTELLIX [Concomitant]
     Active Substance: VORTIOXETINE HYDROBROMIDE
  8. VESICARE [Concomitant]
  9. ISOSORBIDE M [Concomitant]
  10. DEXILANT [Concomitant]
     Active Substance: DEXLANSOPRAZOLE
  11. CLONAZEPAM [Concomitant]
     Active Substance: CLONAZEPAM
  12. JARDIANCE [Concomitant]
     Active Substance: EMPAGLIFLOZIN
  13. SINGULAIR [Concomitant]
     Active Substance: MONTELUKAST SODIUM
  14. VITAMIN D NOS [Concomitant]
     Active Substance: VITAMIN D NOS
  15. VITAMINS [Concomitant]
     Active Substance: VITAMINS
  16. VITAMIN C [Concomitant]
     Active Substance: ASCORBIC ACID

REACTIONS (4)
  - Dysgeusia [None]
  - Pruritus [None]
  - Pain [None]
  - Vaginal infection [None]

NARRATIVE: CASE EVENT DATE: 20220413
